FAERS Safety Report 14233643 (Version 6)
Quarter: 2018Q3

REPORT INFORMATION
  Report Type: Report from Study
  Country: US (occurrence: US)
  Receive Date: 20171129
  Receipt Date: 20180823
  Transmission Date: 20181010
  Serious: Yes (Hospitalization)
  Sender: FDA-Public Use
  Company Number: US-BAYER-2017-221104

PATIENT
  Age: 70 Year
  Sex: Female

DRUGS (11)
  1. STIVARGA [Suspect]
     Active Substance: REGORAFENIB
     Indication: GASTROINTESTINAL STROMAL CANCER
     Dosage: DAILY DOSE 80 MG (3 WEEKS ON, ONE WEEK OFF)
     Route: 048
     Dates: start: 20171130, end: 20171210
  2. SUTENT [Concomitant]
     Active Substance: SUNITINIB MALATE
     Dosage: UNK, AS DIRECTED
     Route: 048
     Dates: start: 20161130, end: 20171101
  3. JANUMET [Concomitant]
     Active Substance: METFORMIN HYDROCHLORIDE\SITAGLIPTIN PHOSPHATE
     Dosage: 1 (50?1000 MG) TABLET, BID
     Route: 048
  4. NEXIUM [Concomitant]
     Active Substance: ESOMEPRAZOLE MAGNESIUM
     Dosage: 40 MG, QOD
     Route: 048
  5. STIVARGA [Suspect]
     Active Substance: REGORAFENIB
     Indication: GASTROINTESTINAL STROMAL CANCER
     Dosage: DAILY DOSE 160 MG (3 WEEKS ON, ONE WEEK OFF)
     Route: 048
     Dates: start: 20171109, end: 20171114
  6. STIVARGA [Suspect]
     Active Substance: REGORAFENIB
     Indication: GASTROINTESTINAL STROMAL CANCER
     Dosage: 80 MG DAILY (14 DAYS ON AND 7 DAYS OFF)
     Route: 048
     Dates: start: 20180111
  7. FENOFIBRATE. [Concomitant]
     Active Substance: FENOFIBRATE
     Dosage: DAILUY DOSE 160 MG
     Route: 048
  8. ONDANSETRON HYDROCHLORIDE. [Concomitant]
     Active Substance: ONDANSETRON HYDROCHLORIDE
     Dosage: 40 MG, TID AS REQUIRED
     Route: 048
  9. STIVARGA [Suspect]
     Active Substance: REGORAFENIB
     Indication: GASTROINTESTINAL STROMAL CANCER
     Dosage: UNK
     Route: 048
     Dates: start: 20180207
  10. FLUZONE [Concomitant]
     Active Substance: INFLUENZA A VIRUS A/CALIFORNIA/7/2009 X-179A (H1N1) ANTIGEN (FORMALDEHYDE INACTIVATED)\INFLUENZA A VIRUS A/VICTORIA/210/2009 X-187 (H3N2) ANTIGEN (FORMALDEHYDE INACTIVATED)\INFLUENZA B VIRUS B/BRISBANE/60/2008 ANTIGEN (FORMALDEHYDE INACTIVATED)
     Dosage: UNK
     Route: 030
     Dates: start: 201710
  11. SUTENT [Concomitant]
     Active Substance: SUNITINIB MALATE
     Dosage: UNK
     Route: 048
     Dates: end: 20171129

REACTIONS (11)
  - Chest pain [None]
  - Tongue blistering [None]
  - Dyspepsia [Recovered/Resolved]
  - Abdominal discomfort [Recovering/Resolving]
  - Oropharyngeal pain [None]
  - Chest pain [Recovered/Resolved]
  - Aphonia [Recovering/Resolving]
  - Dysphonia [None]
  - Dysphonia [Not Recovered/Not Resolved]
  - Blood pressure increased [Recovered/Resolved]
  - Off label use [None]

NARRATIVE: CASE EVENT DATE: 201711
